FAERS Safety Report 18913085 (Version 1)
Quarter: 2021Q1

REPORT INFORMATION
  Report Type: Spontaneous
  Country: GR (occurrence: GR)
  Receive Date: 20210218
  Receipt Date: 20210218
  Transmission Date: 20210420
  Serious: Yes (Death, Hospitalization)
  Sender: FDA-Public Use
  Company Number: GR-MYLANLABS-2021M1010466

PATIENT
  Age: 68 Year
  Sex: Female

DRUGS (8)
  1. LEVOTHYROXINE. [Concomitant]
     Active Substance: LEVOTHYROXINE
     Indication: HYPOTHYROIDISM
     Dosage: 137 MICROGRAM P.OS. Q.D.
  2. MOXIFLOXACIN. [Suspect]
     Active Substance: MOXIFLOXACIN
     Indication: INFECTION
     Dosage: 400 MILLIGRAM, QD
     Route: 042
  3. PIPERACILLIN/TAZOBACTAM [Suspect]
     Active Substance: PIPERACILLIN SODIUM\TAZOBACTAM SODIUM
     Indication: INFECTION
     Dosage: 4.5 GRAM, TID
     Route: 042
  4. IMIPENEM [Suspect]
     Active Substance: IMIPENEM
     Indication: INFECTION
     Dosage: 1 GRAM, TID
     Route: 042
  5. INSULIN GLARGINE [Concomitant]
     Active Substance: INSULIN GLARGINE
     Indication: HYPOTHYROIDISM
     Dosage: 18 U? S. Q Q D
  6. VANCOMYCIN [Suspect]
     Active Substance: VANCOMYCIN
     Indication: INFECTION
     Dosage: 1 GRAM, BID
     Route: 042
  7. ITRACONAZOLE. [Suspect]
     Active Substance: ITRACONAZOLE
     Indication: INFECTION
     Dosage: 200 MILLIGRAM, BID
     Route: 042
  8. MEROPENEM. [Suspect]
     Active Substance: MEROPENEM
     Indication: INFECTION
     Dosage: 2 GRAM, TID
     Route: 042

REACTIONS (1)
  - Drug ineffective [Fatal]
